FAERS Safety Report 22255068 (Version 2)
Quarter: 2023Q4

REPORT INFORMATION
  Report Type: Report from Study
  Country: HU (occurrence: HU)
  Receive Date: 20230426
  Receipt Date: 20231109
  Transmission Date: 20240110
  Serious: Yes (Hospitalization, Other)
  Sender: FDA-Public Use
  Company Number: HU-BAXTER-2012BH002952

PATIENT
  Age: 1 Year
  Sex: Male
  Weight: 12 kg

DRUGS (18)
  1. ADVATE [Suspect]
     Active Substance: ANTIHEMOPHILIC FACTOR, HUMAN RECOMBINANT
     Indication: Factor VIII deficiency
     Dosage: UNK
     Route: 042
     Dates: start: 20111005
  2. ADVATE [Suspect]
     Active Substance: ANTIHEMOPHILIC FACTOR, HUMAN RECOMBINANT
     Indication: Factor VIII deficiency
     Dosage: UNK
     Route: 042
     Dates: start: 20111005
  3. ADVATE [Suspect]
     Active Substance: ANTIHEMOPHILIC FACTOR, HUMAN RECOMBINANT
     Indication: Factor VIII deficiency
     Dosage: UNK
     Route: 042
     Dates: start: 20111005
  4. ADVATE [Suspect]
     Active Substance: ANTIHEMOPHILIC FACTOR, HUMAN RECOMBINANT
     Indication: Prophylaxis
  5. ADVATE [Suspect]
     Active Substance: ANTIHEMOPHILIC FACTOR, HUMAN RECOMBINANT
     Indication: Prophylaxis
  6. ADVATE [Suspect]
     Active Substance: ANTIHEMOPHILIC FACTOR, HUMAN RECOMBINANT
     Indication: Prophylaxis
  7. AMOXICILLIN\CLAVULANATE POTASSIUM [Concomitant]
     Active Substance: AMOXICILLIN\CLAVULANATE POTASSIUM
     Indication: Otitis media
     Dosage: 3 MILLILITER, BID
     Route: 048
     Dates: start: 20120116, end: 20120120
  8. AMOXICILLIN\CLAVULANATE POTASSIUM [Concomitant]
     Active Substance: AMOXICILLIN\CLAVULANATE POTASSIUM
     Dosage: 5 MILLILITER, BID
     Route: 048
     Dates: start: 20120121, end: 20120123
  9. PANADOL [Concomitant]
     Active Substance: ACETAMINOPHEN
     Indication: Pyrexia
     Dosage: 7 MILLILITER
     Route: 048
     Dates: start: 20120120, end: 20120124
  10. PANADOL [Concomitant]
     Active Substance: ACETAMINOPHEN
     Dosage: 7 MILLILITER
     Route: 048
     Dates: start: 20120910, end: 20120910
  11. PANADOL [Concomitant]
     Active Substance: ACETAMINOPHEN
     Dosage: 6.5 MILLILITER
     Route: 048
     Dates: start: 20111008, end: 20111008
  12. NORAMINOPHENAZONUM [Concomitant]
     Indication: Pyrexia
     Dosage: 0.2 GRAM
     Route: 054
     Dates: start: 20120120, end: 20120121
  13. DICLOFENAC [Concomitant]
     Active Substance: DICLOFENAC
     Indication: Pyrexia
     Dosage: 11 GTT DROPS
     Route: 048
     Dates: start: 20120120, end: 20120123
  14. AMBROXOL [Concomitant]
     Active Substance: AMBROXOL
     Indication: Ear pain
     Dosage: 5 MILLILITER, BID
     Route: 048
     Dates: start: 20150312, end: 20150318
  15. LACTOBACILLUS ACIDOPHILUS [Concomitant]
     Active Substance: LACTOBACILLUS ACIDOPHILUS
     Indication: Probiotic therapy
     Dosage: 1 DOSAGE FORM, QD
     Route: 065
     Dates: start: 20150312, end: 20150319
  16. AMOXICILLIN\CLAVULANIC ACID [Concomitant]
     Active Substance: AMOXICILLIN\CLAVULANIC ACID
     Indication: Ear pain
     Dosage: 5 MILLILITER, BID
     Route: 065
     Dates: start: 20150312, end: 20150318
  17. ACETAMINOPHEN [Concomitant]
     Active Substance: ACETAMINOPHEN
     Indication: Pyrexia
     Dosage: 7 MILLILITER, BID
     Route: 065
     Dates: start: 20120910, end: 20120910
  18. FERROUS SULFATE\SERINE [Concomitant]
     Active Substance: FERROUS SULFATE\SERINE
     Indication: Anaemia
     Dosage: 5 MILLILITER, QD
     Route: 065
     Dates: start: 20140124, end: 20140819

REACTIONS (3)
  - Brain injury [Recovered/Resolved]
  - Hordeolum [Recovered/Resolved]
  - Blepharitis [Recovered/Resolved]

NARRATIVE: CASE EVENT DATE: 20120118
